FAERS Safety Report 4930317-3 (Version None)
Quarter: 2006Q1

REPORT INFORMATION
  Report Type: 
  Country: None (occurrence: None)
  Receive Date: 20060118
  Receipt Date: 20050706
  Transmission Date: 20060701
  Serious: No
  Sender: FDA-Public Use
  Company Number: 2005001284

PATIENT
  Age: 62 Year
  Sex: Female

DRUGS (5)
  1. TARCEVA [Suspect]
     Indication: NON-SMALL CELL LUNG CANCER
     Dosage: 150 MG (QD), ORAL
     Route: 048
  2. TRUSOPT [Concomitant]
  3. XALATAN [Concomitant]
  4. VITAMINS (VITAMINS) [Concomitant]
  5. MINERAL TAB [Concomitant]

REACTIONS (5)
  - ALOPECIA [None]
  - DIARRHOEA [None]
  - EYELIDS PRURITUS [None]
  - PHOTOSENSITIVITY REACTION [None]
  - SUNBURN [None]
